FAERS Safety Report 11932052 (Version 1)
Quarter: 2016Q1

REPORT INFORMATION
  Report Type: Spontaneous
  Country: US (occurrence: US)
  Receive Date: 20160120
  Receipt Date: 20160120
  Transmission Date: 20160526
  Serious: No
  Sender: FDA-Public Use
  Company Number: US-PFIZER INC-2015471354

PATIENT
  Age: 47 Year
  Sex: Female
  Weight: 150.14 kg

DRUGS (2)
  1. ZITHROMAX [Suspect]
     Active Substance: AZITHROMYCIN DIHYDRATE
     Dosage: FOUR 250MG TABLETS THE FIRST DAY AND ONE 250MG TABLET FOR 2 DAYS
     Route: 048
     Dates: start: 20151221, end: 20151222
  2. ZITHROMAX [Suspect]
     Active Substance: AZITHROMYCIN DIHYDRATE
     Indication: ACUTE SINUSITIS
     Dosage: FOUR 250MG TABLETS THE FIRST DAY AND ONE 250MG TABLET FOR 2 DAYS
     Route: 048
     Dates: start: 20151220, end: 20151220

REACTIONS (7)
  - Palpitations [Not Recovered/Not Resolved]
  - Blood magnesium decreased [Unknown]
  - Muscular weakness [Not Recovered/Not Resolved]
  - Circumstance or information capable of leading to medication error [Unknown]
  - Fatigue [Unknown]
  - Ventricular extrasystoles [Not Recovered/Not Resolved]
  - Dyspnoea [Not Recovered/Not Resolved]

NARRATIVE: CASE EVENT DATE: 20151220
